FAERS Safety Report 13314046 (Version 1)
Quarter: 2017Q1

REPORT INFORMATION
  Report Type: Report from Study
  Country: JP (occurrence: JP)
  Receive Date: 20170309
  Receipt Date: 20170309
  Transmission Date: 20170428
  Serious: Yes (Other)
  Sender: FDA-Public Use
  Company Number: JP-MYLANLABS-2017M1014277

PATIENT

DRUGS (4)
  1. VALPROIC ACID. [Suspect]
     Active Substance: VALPROIC ACID
     Indication: SEVERE MYOCLONIC EPILEPSY OF INFANCY
     Dosage: 28.17MG/KG/DAY
     Route: 048
  2. TOPIRAMATE. [Interacting]
     Active Substance: TOPIRAMATE
     Indication: SEVERE MYOCLONIC EPILEPSY OF INFANCY
     Dosage: 4.69MG/KG/DAY
     Route: 048
  3. CLOBAZAM [Interacting]
     Active Substance: CLOBAZAM
     Indication: SEVERE MYOCLONIC EPILEPSY OF INFANCY
     Dosage: 0.19MG/KG/DAY
     Route: 048
  4. STIRIPENTOL [Interacting]
     Active Substance: STIRIPENTOL
     Indication: SEVERE MYOCLONIC EPILEPSY OF INFANCY
     Dosage: 37.56MG/KG/DAY
     Route: 048

REACTIONS (5)
  - Drug interaction [Recovered/Resolved]
  - Decreased appetite [Recovered/Resolved]
  - Drug level increased [Recovered/Resolved]
  - Thrombocytopenia [Recovered/Resolved]
  - Somnolence [Recovered/Resolved]
